FAERS Safety Report 14853483 (Version 3)
Quarter: 2020Q2

REPORT INFORMATION
  Report Type: Spontaneous
  Country: FR (occurrence: FR)
  Receive Date: 20180507
  Receipt Date: 20200625
  Transmission Date: 20200713
  Serious: Yes (Hospitalization, Other)
  Sender: FDA-Public Use
  Company Number: PHHY2018FR002268

PATIENT
  Age: 54 Year
  Sex: Male
  Weight: 83.8 kg

DRUGS (28)
  1. CEFUROXIME. [Concomitant]
     Active Substance: CEFUROXIME
     Indication: PRODUCT USED FOR UNKNOWN INDICATION
     Dosage: 2 DF, QD FOR 7 DAYS
     Route: 048
  2. METOCLOPRAMIDE. [Concomitant]
     Active Substance: METOCLOPRAMIDE
     Indication: NAUSEA
  3. DOCUSATE SODIUM. [Concomitant]
     Active Substance: DOCUSATE SODIUM
     Indication: CONSTIPATION
     Dosage: 1 DF, TID 100 MG; THREE TIMES A DAY AS NEEDED
     Route: 048
  4. METOCLOPRAMIDE. [Concomitant]
     Active Substance: METOCLOPRAMIDE
     Indication: NAUSEA
     Dosage: 1 DF, PRN (FOR 30 DAYS, AS NEEDED)
     Route: 048
  5. LORAZEPAM. [Concomitant]
     Active Substance: LORAZEPAM
     Indication: CLAUSTROPHOBIA
     Dosage: 1 DF, QD (1 TAB 30 MIN PRIOR TO MRIMAY TAKE 1-2 PRN)
     Route: 048
  6. ABIRATERONE ACETATE. [Suspect]
     Active Substance: ABIRATERONE ACETATE
     Indication: HORMONE-REFRACTORY PROSTATE CANCER
     Dosage: 1000 MG,QD
     Route: 048
     Dates: start: 20170804, end: 20171109
  7. OXYCODONE [Concomitant]
     Active Substance: OXYCODONE
     Indication: PAIN
     Dosage: 3 DF, Q4H (2-3 TABS EVERY 4 HOURS FOR 30 DAYS; AS NEEDED)
     Route: 048
  8. ASPIRIN. [Concomitant]
     Active Substance: ASPIRIN
     Indication: PRODUCT USED FOR UNKNOWN INDICATION
     Dosage: FORM: ENTERIC COATED DELAYED RELEASE TABLETSTRENGTH: 81 MGFOR 90 DAYS1 DF, QD
     Route: 048
  9. ACETYLSALICYLIC ACID [Concomitant]
     Active Substance: ASPIRIN
     Indication: PRODUCT USED FOR UNKNOWN INDICATION
     Dosage: 1 DF,QD
     Route: 048
  10. CABAZITAXEL [Suspect]
     Active Substance: CABAZITAXEL
     Dosage: 25 MG/M2,Q3W
     Route: 042
     Dates: start: 20180202, end: 20180202
  11. CASSIA SENNA [Concomitant]
     Active Substance: HERBALS\SENNOSIDES
     Indication: CONSTIPATION
     Dosage: 4 DF, QD FOR 30 DAYS, STRENGTH: 8.6 MG; FPR 30 DAYS
     Route: 048
  12. BISACODYL. [Concomitant]
     Active Substance: BISACODYL
     Indication: CONSTIPATION
     Dosage: 1 DF
     Route: 054
  13. CABAZITAXEL [Suspect]
     Active Substance: CABAZITAXEL
     Indication: HORMONE-REFRACTORY PROSTATE CANCER
     Dosage: 25 MG/M2,Q3W
     Route: 042
     Dates: start: 20171110, end: 20171110
  14. CIPROFLOXACIN. [Concomitant]
     Active Substance: CIPROFLOXACIN
     Indication: PRODUCT USED FOR UNKNOWN INDICATION
     Dosage: 1000 MG,
     Route: 048
     Dates: start: 20180226
  15. CIPROFLOXACIN. [Concomitant]
     Active Substance: CIPROFLOXACIN
     Dosage: 500 MG,BID
     Route: 048
     Dates: start: 20180226
  16. SENNA [Concomitant]
     Active Substance: SENNA LEAF\SENNOSIDES\SENNOSIDES A AND B
     Indication: CONSTIPATION
     Dosage: 2 DF,BID
     Route: 048
  17. CABAZITAXEL [Suspect]
     Active Substance: CABAZITAXEL
     Dosage: 25 MG/M2, Q3W
     Route: 042
     Dates: start: 20180312, end: 20180312
  18. OXYCONTIN [Concomitant]
     Active Substance: OXYCODONE HYDROCHLORIDE
     Indication: PRODUCT USED FOR UNKNOWN INDICATION
     Dosage: 2 DF, QD
     Route: 048
  19. PREDNISONE. [Suspect]
     Active Substance: PREDNISONE
     Indication: PROSTATE CANCER METASTATIC
     Dosage: 10 MG, QD
     Route: 048
     Dates: start: 20170804, end: 20171109
  20. PREDNISONE. [Suspect]
     Active Substance: PREDNISONE
     Dosage: 5 MG, BID
     Route: 048
     Dates: start: 20181030
  21. ABIRATERONE ACETATE. [Suspect]
     Active Substance: ABIRATERONE ACETATE
     Indication: PROSTATE CANCER METASTATIC
     Dosage: 1000 MG, QD
     Route: 048
     Dates: start: 20181030
  22. MIRALAX [Concomitant]
     Active Substance: POLYETHYLENE GLYCOL 3350
     Indication: PRODUCT USED FOR UNKNOWN INDICATION
     Dosage: 17 G, QD FOR 30 DAYS (ORAL POWDER FOR RECONSTITUTION; FOR 30 DAYS)
     Route: 048
  23. DULCOLAX NOS [Concomitant]
     Active Substance: BISACODYL OR DOCUSATE SODIUM
     Indication: CONSTIPATION
     Dosage: 1 DF, QD (RECTAL SUPPOSITORY; ONCE A DAY AS NEEDED)
     Route: 048
  24. PREDNISONE. [Suspect]
     Active Substance: PREDNISONE
     Dosage: 5 MG, BID
     Route: 048
     Dates: start: 20170804, end: 20171109
  25. CABAZITAXEL [Suspect]
     Active Substance: CABAZITAXEL
     Dosage: 25 MG/M2, Q3W
     Route: 042
     Dates: start: 20181030, end: 20181030
  26. CLONAZEPAM. [Concomitant]
     Active Substance: CLONAZEPAM
     Indication: ANXIETY
     Dosage: 1 DF, QD (0.5 MG 2 TIMES A DAY AS NEEDED)
     Route: 048
  27. CEFUROXIME. [Concomitant]
     Active Substance: CEFUROXIME
     Dosage: 1 DF,BID
     Route: 048
  28. AMLODIPINE [Concomitant]
     Active Substance: AMLODIPINE BESYLATE
     Indication: PRODUCT USED FOR UNKNOWN INDICATION
     Dosage: 1 DF, QD
     Route: 048

REACTIONS (2)
  - Neutropenia [Recovered/Resolved]
  - Abdominal pain [Recovered/Resolved]

NARRATIVE: CASE EVENT DATE: 20180213
